FAERS Safety Report 20167396 (Version 1)
Quarter: 2021Q4

REPORT INFORMATION
  Report Type: Spontaneous
  Country: LT (occurrence: LT)
  Receive Date: 20211209
  Receipt Date: 20211209
  Transmission Date: 20220303
  Serious: Yes (Hospitalization, Other)
  Sender: FDA-Public Use
  Company Number: None

PATIENT
  Sex: Female
  Weight: 60 kg

DRUGS (2)
  1. ESCITALOPRAM OXALATE [Suspect]
     Active Substance: ESCITALOPRAM OXALATE
     Indication: Anxiety
     Dosage: OVERDOSE: AMOUNT OF TABLETS UNKNOWN
     Route: 065
     Dates: start: 20211116, end: 20211117
  2. XANAX [Suspect]
     Active Substance: ALPRAZOLAM
     Indication: Anxiety
     Dosage: AMOUNT OF TABLETS UNKNOWN
     Route: 065
     Dates: start: 20211116, end: 20211117

REACTIONS (3)
  - Intentional overdose [Unknown]
  - Suicide attempt [Recovered/Resolved]
  - Nausea [Recovered/Resolved]

NARRATIVE: CASE EVENT DATE: 20211116
